FAERS Safety Report 22959693 (Version 6)
Quarter: 2024Q1

REPORT INFORMATION
  Report Type: Spontaneous
  Country: US (occurrence: US)
  Receive Date: 20230920
  Receipt Date: 20240115
  Transmission Date: 20240410
  Serious: Yes (Hospitalization, Other)
  Sender: FDA-Public Use
  Company Number: US-ORGANON-O2309USA002147

PATIENT
  Sex: Male
  Weight: 74.558 kg

DRUGS (11)
  1. SINGULAIR [Suspect]
     Active Substance: MONTELUKAST SODIUM
     Indication: Asthma
     Dosage: 4 MILLIGRAM
     Route: 048
     Dates: start: 2007
  2. SINGULAIR [Suspect]
     Active Substance: MONTELUKAST SODIUM
     Indication: Hypersensitivity
  3. SINGULAIR [Suspect]
     Active Substance: MONTELUKAST SODIUM
     Indication: Asthma
     Dosage: 5 MILLIGRAM, EVERY MORNING (QAM)
     Route: 048
     Dates: start: 201712, end: 2019
  4. SINGULAIR [Suspect]
     Active Substance: MONTELUKAST SODIUM
     Indication: Hypersensitivity
  5. SINGULAIR [Suspect]
     Active Substance: MONTELUKAST SODIUM
     Indication: Asthma
     Dosage: 10 MILLIGRAM, BY MOUTH EACH MORNING (QAM)
     Route: 048
  6. SINGULAIR [Suspect]
     Active Substance: MONTELUKAST SODIUM
     Dosage: 5 MILLIGRAM, QD
     Route: 048
  7. VENTOLIN HFA [Concomitant]
     Active Substance: ALBUTEROL SULFATE
     Indication: Asthma
     Dosage: 2 DOSAGE FORM, EVERY 4 HOURS AS NEEDED
  8. ZITHROMAX [Concomitant]
     Active Substance: AZITHROMYCIN DIHYDRATE
     Indication: Bronchitis
     Dosage: 250 MILLIGRAM, QD
     Route: 048
  9. CEPACOL SORE THROAT [BENZOCAINE;MENTHOL] [Concomitant]
     Indication: Cough
     Dosage: 1 DOSAGE FORM, EVERY 2 HOURS AS NEEDED
     Route: 002
  10. ALLEGRA [Concomitant]
     Active Substance: FEXOFENADINE HYDROCHLORIDE
     Indication: Asthma
     Dosage: 180 MILLIGRAM, QD AS NEEDED
     Route: 048
  11. ALLEGRA [Concomitant]
     Active Substance: FEXOFENADINE HYDROCHLORIDE
     Indication: Hypersensitivity

REACTIONS (23)
  - Neuropsychological symptoms [Unknown]
  - Major depression [Recovered/Resolved]
  - Bipolar II disorder [Not Recovered/Not Resolved]
  - Intentional self-injury [Unknown]
  - Suicide attempt [Unknown]
  - Suicide attempt [Recovered/Resolved]
  - Suicidal ideation [Recovered/Resolved]
  - Suicidal ideation [Recovered/Resolved]
  - Suicidal ideation [Recovered/Resolved]
  - Suicidal ideation [Recovered/Resolved]
  - Suicidal behaviour [Recovered/Resolved]
  - Suicidal ideation [Recovered/Resolved]
  - Attention deficit hyperactivity disorder [Not Recovered/Not Resolved]
  - Obsessive-compulsive disorder [Not Recovered/Not Resolved]
  - Behaviour disorder [Unknown]
  - Sleep disorder [Recovering/Resolving]
  - Dysphemia [Not Recovered/Not Resolved]
  - Tic [Not Recovered/Not Resolved]
  - Agitation [Not Recovered/Not Resolved]
  - Tremor [Recovering/Resolving]
  - Affective disorder [Unknown]
  - Decreased appetite [Unknown]
  - Disruptive mood dysregulation disorder [Not Recovered/Not Resolved]

NARRATIVE: CASE EVENT DATE: 20150101
